FAERS Safety Report 7183300-4 (Version None)
Quarter: 2010Q4

REPORT INFORMATION
  Report Type: 
  Country: None (occurrence: None)
  Receive Date: 20101222
  Receipt Date: 20100729
  Transmission Date: 20110411
  Serious: No
  Sender: FDA-Public Use
  Company Number: A0872961A

PATIENT
  Age: 53 Year
  Sex: Female

DRUGS (2)
  1. FLONASE [Suspect]
     Dosage: 4SPR PER DAY
     Route: 045
     Dates: start: 20100725
  2. NO CONCURRENT MEDICATION [Concomitant]

REACTIONS (4)
  - BURNING SENSATION [None]
  - NASAL DRYNESS [None]
  - PAIN [None]
  - SINUS HEADACHE [None]
